FAERS Safety Report 15253963 (Version 1)
Quarter: 2018Q3

REPORT INFORMATION
  Report Type: Spontaneous
  Country: US (occurrence: US)
  Receive Date: 20180808
  Receipt Date: 20180808
  Transmission Date: 20181010
  Serious: No
  Sender: FDA-Public Use
  Company Number: US-LUPIN PHARMACEUTICALS INC.-2017-04466

PATIENT
  Age: 31 Year
  Sex: Male

DRUGS (1)
  1. DOXYCYCLINE. [Suspect]
     Active Substance: DOXYCYCLINE
     Indication: Q FEVER
     Dosage: UNK
     Route: 048

REACTIONS (1)
  - Gastrointestinal tract mucosal discolouration [Recovered/Resolved]
